FAERS Safety Report 13554545 (Version 1)
Quarter: 2017Q2

REPORT INFORMATION
  Report Type: Report from Study
  Country: BR (occurrence: BR)
  Receive Date: 20170517
  Receipt Date: 20170517
  Transmission Date: 20170830
  Serious: Yes (Death)
  Sender: FDA-Public Use
  Company Number: PHHY2017BR072373

PATIENT
  Sex: Female

DRUGS (1)
  1. FORASEQ [Suspect]
     Active Substance: BUDESONIDE\FORMOTEROL FUMARATE
     Indication: ASTHMA
     Dosage: 1 DF (400 UG, AS REPORTED), BID (ONE IN THE MORNING AND ONE AT NIGHT)
     Route: 055

REACTIONS (2)
  - Neoplasm malignant [Fatal]
  - Weight fluctuation [Unknown]
